FAERS Safety Report 9729269 (Version 2)
Quarter: 2013Q4

REPORT INFORMATION
  Report Type: Spontaneous
  Country: GB (occurrence: GB)
  Receive Date: 20131204
  Receipt Date: 20131204
  Transmission Date: 20140711
  Serious: Yes (Death, Hospitalization)
  Sender: FDA-Public Use
  Company Number: GB-BAYER-2013-135349

PATIENT
  Sex: Male

DRUGS (4)
  1. XARELTO [Suspect]
     Indication: MYOCARDIAL ISCHAEMIA
     Dosage: DAILY DOSE 20 MG
  2. XARELTO [Suspect]
     Indication: CEREBROVASCULAR ACCIDENT
  3. ACETYLSALICYLIC ACID({=100 MG) [Suspect]
     Indication: MYOCARDIAL ISCHAEMIA
     Dosage: DAILY DOSE 75 MG
  4. ACETYLSALICYLIC ACID({=100 MG) [Suspect]
     Indication: CEREBROVASCULAR ACCIDENT

REACTIONS (3)
  - Upper gastrointestinal haemorrhage [Fatal]
  - Creatinine renal clearance decreased [None]
  - Drug interaction [None]
